FAERS Safety Report 19042848 (Version 2)
Quarter: 2021Q1

REPORT INFORMATION
  Report Type: Spontaneous
  Country: JP (occurrence: JP)
  Receive Date: 20210323
  Receipt Date: 20210331
  Transmission Date: 20210420
  Serious: Yes (Other)
  Sender: FDA-Public Use
  Company Number: JP-TEVA-2021-JP-1892918

PATIENT
  Age: 69 Year
  Sex: Female

DRUGS (2)
  1. TS?1 [Suspect]
     Active Substance: GIMERACIL\OTERACIL\TEGAFUR
     Indication: GASTRIC CANCER STAGE III
     Dosage: 3 WEEKS OF ADMINISTRATION AND 2 WEEKS OF DRUG HOLIDAY
     Route: 065
  2. L?OHP [Suspect]
     Active Substance: OXALIPLATIN
     Indication: GASTRIC CANCER STAGE III
     Dosage: ON DAY 1 AS 1 CYCLE
     Route: 041

REACTIONS (1)
  - Myelosuppression [Unknown]
